FAERS Safety Report 20091485 (Version 1)
Quarter: 2021Q4

REPORT INFORMATION
  Report Type: Spontaneous
  Country: FR (occurrence: FR)
  Receive Date: 20211119
  Receipt Date: 20211119
  Transmission Date: 20220303
  Serious: Yes (Hospitalization, Other)
  Sender: FDA-Public Use
  Company Number: None

PATIENT
  Age: 50 Year
  Sex: Female
  Weight: 58.6 kg

DRUGS (12)
  1. NOXAFIL [Suspect]
     Active Substance: POSACONAZOLE
     Indication: Product used for unknown indication
     Dosage: 3 DOSAGE FORM, QD; GASTRO-RESISTANT TABLET
     Route: 048
  2. PREDNISONE [Suspect]
     Active Substance: PREDNISONE
     Indication: Bone marrow transplant
     Dosage: 3 DOSAGE FORM, QD; 60 MG/J
     Route: 048
     Dates: start: 20210222, end: 20210814
  3. MODERNA COVID-19 VACCINE [Suspect]
     Active Substance: CX-024414
     Indication: COVID-19 immunisation
     Dosage: 1 DOSAGE FORM; TOTAL
     Route: 030
     Dates: start: 20210706
  4. PANTOPRAZOLE [Concomitant]
     Active Substance: PANTOPRAZOLE
     Indication: Product used for unknown indication
     Dosage: 40 MILLIGRAM, QD
  5. BACTRIM [Concomitant]
     Active Substance: SULFAMETHOXAZOLE\TRIMETHOPRIM
     Indication: Infection prophylaxis
     Dosage: UNK
     Route: 048
  6. VALACYCLOVIR HYDROCHLORIDE [Concomitant]
     Active Substance: VALACYCLOVIR HYDROCHLORIDE
     Indication: Infection prophylaxis
     Dosage: 1 DOSAGE FORM, QD
     Route: 048
  7. CHOLECALCIFEROL [Concomitant]
     Active Substance: CHOLECALCIFEROL
     Indication: Vitamin D deficiency
     Dosage: 1 DOSAGE FORM, QM; 1 MILLION IU PERCENT, ORAL SOLUTION IN DROPS
     Route: 048
  8. CIPROFLOXACIN [Concomitant]
     Active Substance: CIPROFLOXACIN
     Indication: Infection prophylaxis
     Dosage: 1.5 GRAM, QD; 750 MG 2X/J
     Route: 048
  9. NOMEGESTROL [Concomitant]
     Active Substance: NOMEGESTROL
     Indication: Product used for unknown indication
     Dosage: 5 MILLIGRAM, QD
     Route: 048
  10. AUGMENTIN [Concomitant]
     Active Substance: AMOXICILLIN\CLAVULANATE POTASSIUM
     Indication: Infection prophylaxis
     Dosage: UNK; 1 G / 125 MG ADULTS, POWDER FOR ORAL SUSPENSION IN SACHET-DOSE (AMOXICILLIN / CLAVULANIC ACID R
     Route: 048
  11. SINGULAIR [Concomitant]
     Active Substance: MONTELUKAST SODIUM
     Indication: Lung disorder
     Dosage: 1 DOSAGE FORM, QD
     Route: 048
  12. SYMBICORT [Concomitant]
     Active Substance: BUDESONIDE\FORMOTEROL FUMARATE DIHYDRATE
     Indication: Lung disorder
     Dosage: 2 DOSAGE FORM, QD; 400/12 MICROGRAMS / DOSE, POWDER FOR INHALATION
     Route: 055

REACTIONS (2)
  - COVID-19 pneumonia [Recovering/Resolving]
  - Pneumocystis jirovecii pneumonia [Recovering/Resolving]

NARRATIVE: CASE EVENT DATE: 20210727
